FAERS Safety Report 4984185-4 (Version None)
Quarter: 2006Q2

REPORT INFORMATION
  Report Type: 
  Country: None (occurrence: None)
  Receive Date: 20060420
  Receipt Date: 20060410
  Transmission Date: 20061013
  Serious: Yes (Disabling)
  Sender: FDA-Public Use
  Company Number: 2006049575

PATIENT
  Age: 68 Year
  Sex: Female

DRUGS (3)
  1. SOLU-MEDROL [Suspect]
     Indication: BREAST CANCER METASTATIC
     Dosage: 120 MG (120 MG, 1 IN 1 M), INTRAVENOUS
     Route: 042
  2. ZOMETA [Suspect]
     Indication: BREAST CANCER METASTATIC
     Dosage: 4 MG (4 MG, 1 IN 1 M), INTRAVENOUS
     Route: 042
  3. MORPHINE SULFATE [Concomitant]

REACTIONS (3)
  - IMPAIRED HEALING [None]
  - OSTEONECROSIS [None]
  - STOMATITIS NECROTISING [None]
